FAERS Safety Report 9603573 (Version 1)
Quarter: 2013Q4

REPORT INFORMATION
  Report Type: Spontaneous
  Country: US (occurrence: US)
  Receive Date: 20131007
  Receipt Date: 20131007
  Transmission Date: 20140711
  Serious: No
  Sender: FDA-Public Use
  Company Number: US-PFIZER INC-2013282953

PATIENT
  Age: 66 Year
  Sex: Male
  Weight: 77.1 kg

DRUGS (3)
  1. TOVIAZ [Suspect]
     Indication: HYPERTONIC BLADDER
     Dosage: 8 MG, 1X/DAY
     Dates: start: 20130928
  2. DETROL LA [Suspect]
     Indication: HYPERTONIC BLADDER
     Dosage: 4 MG, 1X/DAY
     Dates: start: 201210, end: 2012
  3. DETROL LA [Suspect]
     Dosage: 4 MG, 1X/DAY
     Dates: start: 2013, end: 201309

REACTIONS (4)
  - Speech disorder [Unknown]
  - Drug effect incomplete [Unknown]
  - Constipation [Unknown]
  - Dry mouth [Unknown]
